FAERS Safety Report 4324335-6 (Version None)
Quarter: 2004Q1

REPORT INFORMATION
  Report Type: 
  Country: None (occurrence: None)
  Receive Date: 20040326
  Receipt Date: 20040130
  Transmission Date: 20041129
  Serious: No
  Sender: FDA-Public Use
  Company Number: US-GLAXOSMITHKLINE-A0495925A

PATIENT
  Age: 91 Year
  Sex: Female

DRUGS (6)
  1. ADVAIR DISKUS 100/50 [Suspect]
     Dosage: 1PUFF TWICE PER DAY
     Route: 055
     Dates: start: 20031024
  2. COMBIVENT [Concomitant]
  3. NIFEDIPINE [Concomitant]
  4. PLETAL [Concomitant]
  5. XALATAN [Concomitant]
  6. BETOPTIC EYE DROPS [Concomitant]

REACTIONS (2)
  - DYSPNOEA [None]
  - THERAPEUTIC RESPONSE DECREASED [None]
